FAERS Safety Report 5914308-1 (Version None)
Quarter: 2008Q4

REPORT INFORMATION
  Report Type: 
  Country: None (occurrence: None)
  Receive Date: 20081009
  Receipt Date: 20080927
  Transmission Date: 20090506
  Serious: Yes (Other)
  Sender: FDA-Public Use
  Company Number: US-PFIZER INC-2008080631

PATIENT
  Sex: Female
  Weight: 71.7 kg

DRUGS (10)
  1. CHANTIX [Suspect]
     Indication: SMOKING CESSATION THERAPY
     Route: 048
     Dates: start: 20080401
  2. XANAX [Concomitant]
     Indication: ANXIETY
  3. ZOLOFT [Concomitant]
  4. INSULIN [Concomitant]
  5. METFORMIN HCL [Concomitant]
     Indication: DIABETES MELLITUS
  6. REMERON [Concomitant]
     Indication: DEPRESSION
  7. ACCUPRIL [Concomitant]
     Indication: HYPERTENSION
  8. ZOCOR [Concomitant]
     Indication: BLOOD CHOLESTEROL INCREASED
  9. PREVACID [Concomitant]
     Indication: GASTROOESOPHAGEAL REFLUX DISEASE
  10. VALIUM [Concomitant]

REACTIONS (3)
  - AGITATION [None]
  - PANCREATIC INSUFFICIENCY [None]
  - PHYSICAL ASSAULT [None]
